FAERS Safety Report 19634116 (Version 1)
Quarter: 2021Q3

REPORT INFORMATION
  Report Type: Other
  Country: US (occurrence: US)
  Receive Date: 20210730
  Receipt Date: 20210730
  Transmission Date: 20211014
  Serious: Yes (Hospitalization)
  Sender: FDA-Public Use
  Company Number: US-AJANTA PHARMA USA INC.-2114435

PATIENT
  Age: 43 Year
  Sex: Female

DRUGS (1)
  1. DOXYCYCLINE HYCLATE (ANDA 211012) [Suspect]
     Active Substance: DOXYCYCLINE HYCLATE
     Indication: ACNE

REACTIONS (1)
  - Cholestatic liver injury [Recovered/Resolved]
